FAERS Safety Report 21860658 (Version 1)
Quarter: 2023Q1

REPORT INFORMATION
  Report Type: Spontaneous
  Country: US (occurrence: None)
  Receive Date: 20230113
  Receipt Date: 20230113
  Transmission Date: 20230417
  Serious: Yes (Hospitalization)
  Sender: FDA-Public Use
  Company Number: None

PATIENT
  Sex: Female
  Weight: 42.5 kg

DRUGS (24)
  1. EPCLUSA [Suspect]
     Active Substance: SOFOSBUVIR\VELPATASVIR
     Indication: Hepatitis C
     Dosage: 400-100 MG TABLET ONCE DAILY BY MOUTH
     Route: 048
     Dates: start: 20171110, end: 20180202
  2. PREDNISONE [Concomitant]
     Active Substance: PREDNISONE
  3. ESCITALOPRAM [Concomitant]
     Active Substance: ESCITALOPRAM OXALATE
  4. RABEPRAZOLE [Concomitant]
     Active Substance: RABEPRAZOLE
  5. VITAMIN D [Concomitant]
     Active Substance: VITAMIN D NOS
  6. AZITHROMYCIN [Concomitant]
     Active Substance: AZITHROMYCIN
  7. CALCIUM CARBONATE [Concomitant]
     Active Substance: CALCIUM CARBONATE
  8. MAGNESIUM OXIDE [Concomitant]
     Active Substance: MAGNESIUM OXIDE
  9. CLOTRIMAZOLE [Concomitant]
     Active Substance: CLOTRIMAZOLE
  10. TINZAPARIN [Concomitant]
     Active Substance: TINZAPARIN
  11. ACETAMINOPHEN [Concomitant]
  12. DIPHENHYDRAMINE [Concomitant]
     Active Substance: DIPHENHYDRAMINE
  13. VALGANCICLOVIR [Concomitant]
     Active Substance: VALGANCICLOVIR
  14. IMURAN [Concomitant]
     Active Substance: AZATHIOPRINE
  15. NYSTATIN [Concomitant]
     Active Substance: NYSTATIN
  16. CYCLOSPORINE [Concomitant]
     Active Substance: CYCLOSPORINE
  17. DAPSONE [Concomitant]
     Active Substance: DAPSONE
  18. HYDROMORPHONE [Concomitant]
     Active Substance: HYDROMORPHONE
  19. METOCLOPRAMIDE [Concomitant]
     Active Substance: METOCLOPRAMIDE
  20. FUROSEMIDE [Concomitant]
     Active Substance: FUROSEMIDE
  21. ZOPICLONE [Concomitant]
     Active Substance: ZOPICLONE
  22. DIMENHYDRINATE [Concomitant]
     Active Substance: DIMENHYDRINATE
  23. SENNA [Concomitant]
     Active Substance: SENNA LEAF\SENNOSIDES\SENNOSIDES A AND B
  24. FERROUS GLUCONATE [Concomitant]
     Active Substance: FERROUS GLUCONATE

REACTIONS (1)
  - Transplant rejection [None]

NARRATIVE: CASE EVENT DATE: 20180122
